FAERS Safety Report 8137561 (Version 9)
Quarter: 2013Q3

REPORT INFORMATION
  Report Type: Spontaneous
  Country: US (occurrence: US)
  Receive Date: 20110915
  Receipt Date: 20130902
  Transmission Date: 20140515
  Serious: Yes (Hospitalization, Other)
  Sender: FDA-Public Use
  Company Number: US-ROCHE-802105

PATIENT
  Age: 24 Year
  Sex: Female
  Weight: 52.21 kg

DRUGS (4)
  1. ACCUTANE [Suspect]
     Indication: ACNE
     Route: 048
     Dates: start: 20041118, end: 20050720
  2. KEFLEX [Concomitant]
     Route: 065
  3. ORTHO TRI-CYCLEN LO [Concomitant]
     Route: 065
  4. BACTRIM [Concomitant]
     Route: 065

REACTIONS (13)
  - Crohn^s disease [Unknown]
  - Colon injury [Unknown]
  - Inflammatory bowel disease [Unknown]
  - Depression [Not Recovered/Not Resolved]
  - Injury [Unknown]
  - Intestinal haemorrhage [Unknown]
  - Perirectal abscess [Unknown]
  - Anal fissure [Unknown]
  - Blood triglycerides increased [Unknown]
  - Back pain [Unknown]
  - Arthralgia [Unknown]
  - Dry skin [Unknown]
  - Irritable bowel syndrome [Unknown]
